FAERS Safety Report 20331591 (Version 2)
Quarter: 2022Q1

REPORT INFORMATION
  Report Type: Spontaneous
  Country: GB (occurrence: GB)
  Receive Date: 20220113
  Receipt Date: 20220124
  Transmission Date: 20220423
  Serious: Yes (Other)
  Sender: FDA-Public Use
  Company Number: GB-BAYER-2022A004635

PATIENT
  Age: 21 Year
  Sex: Male
  Weight: 75 kg

DRUGS (2)
  1. GADOBUTROL [Suspect]
     Active Substance: GADOBUTROL
     Indication: Angiogram
     Dosage: 15 ML, ONCE
     Dates: start: 202111, end: 202111
  2. GADOBUTROL [Suspect]
     Active Substance: GADOBUTROL
     Indication: Magnetic resonance imaging

REACTIONS (14)
  - Arrhythmia [None]
  - Chest discomfort [None]
  - Palpitations [None]
  - Dyspnoea [None]
  - Insomnia [None]
  - Depression [None]
  - Diarrhoea [None]
  - Extremity contracture [None]
  - Eye pain [None]
  - Dry eye [None]
  - Headache [None]
  - Dysgeusia [None]
  - Skin disorder [None]
  - Contrast media deposition [None]

NARRATIVE: CASE EVENT DATE: 20211101
